FAERS Safety Report 23175507 (Version 1)
Quarter: 2023Q4

REPORT INFORMATION
  Report Type: Spontaneous
  Country: BG (occurrence: BG)
  Receive Date: 20231113
  Receipt Date: 20231113
  Transmission Date: 20240110
  Serious: Yes (Death, Life-Threatening, Hospitalization, Other)
  Sender: FDA-Public Use
  Company Number: BG-AMGEN-BGRSP2023197183

PATIENT
  Age: 69 Year
  Sex: Female

DRUGS (4)
  1. CARFILZOMIB [Suspect]
     Active Substance: CARFILZOMIB
     Indication: Plasma cell myeloma
     Dosage: 27 MILLIGRAM/SQ. METER
     Route: 065
     Dates: start: 201901
  2. CARFILZOMIB [Suspect]
     Active Substance: CARFILZOMIB
     Dosage: 20 MILLIGRAM/SQ. METER, REDUCED
     Route: 065
     Dates: start: 201901
  3. LENALIDOMIDE [Concomitant]
     Active Substance: LENALIDOMIDE
     Indication: Plasma cell myeloma
     Dosage: 25 MILLIGRAM, QD, ON 1-21
     Route: 065
     Dates: start: 201901
  4. DEXAMETHASONE [Concomitant]
     Active Substance: DEXAMETHASONE
     Indication: Plasma cell myeloma
     Dosage: 40 MILLIGRAM
     Route: 065
     Dates: start: 201901

REACTIONS (6)
  - Plasma cell myeloma [Fatal]
  - Nephropathy toxic [Unknown]
  - Peripheral artery thrombosis [Unknown]
  - Pneumonia [Unknown]
  - SARS-CoV-2 test positive [Unknown]
  - Off label use [Unknown]

NARRATIVE: CASE EVENT DATE: 20190101
